FAERS Safety Report 5819127-2 (Version None)
Quarter: 2008Q3

REPORT INFORMATION
  Report Type: 
  Country: None (occurrence: None)
  Receive Date: 20080721
  Receipt Date: 20080721
  Transmission Date: 20090109
  Serious: No
  Sender: FDA-Public Use
  Company Number: None

PATIENT
  Age: 60 Year
  Sex: Male
  Weight: 61.23 kg

DRUGS (1)
  1. VARDENAFIL [Suspect]
     Indication: SMOKING CESSATION THERAPY
     Dosage: 20 MG PRN PO
     Route: 048
     Dates: start: 20071214, end: 20080415

REACTIONS (3)
  - HEADACHE [None]
  - NAUSEA [None]
  - VOMITING [None]
